FAERS Safety Report 9210741 (Version 1)
Quarter: 2013Q2

REPORT INFORMATION
  Report Type: Spontaneous
  Country: US (occurrence: US)
  Receive Date: 20130404
  Receipt Date: 20130404
  Transmission Date: 20140414
  Serious: Yes (Other)
  Sender: FDA-Public Use
  Company Number: PHHY2013US031534

PATIENT
  Age: 53 Year
  Sex: Male

DRUGS (3)
  1. MORPHINE [Suspect]
     Indication: CENTRAL PAIN SYNDROME
     Route: 048
  2. PARACETAMOL [Suspect]
     Indication: CENTRAL PAIN SYNDROME
  3. HYDROCODONE [Suspect]
     Indication: CENTRAL PAIN SYNDROME

REACTIONS (1)
  - Cognitive disorder [Unknown]
